FAERS Safety Report 4779550-4 (Version None)
Quarter: 2005Q3

REPORT INFORMATION
  Report Type: 
  Country: None (occurrence: None)
  Receive Date: 20050927
  Receipt Date: 20050826
  Transmission Date: 20060218
  Serious: Yes (Disabling)
  Sender: FDA-Public Use
  Company Number: 200517849GDDC

PATIENT
  Sex: Male
  Weight: 88.9 kg

DRUGS (5)
  1. LANTUS [Suspect]
     Indication: DIABETES MELLITUS
     Dosage: DOSE: UNK
     Dates: start: 20050801
  2. SIMVASTATIN [Concomitant]
     Dates: start: 20041215
  3. LOSEC [Concomitant]
     Dates: start: 20050825
  4. NOVORAPID [Concomitant]
     Dosage: DOSE: UNK
  5. CORTICOSTEROIDS [Concomitant]
     Dosage: DOSE: SPORADICALLY DURING THE SUMMER

REACTIONS (2)
  - HOSTILITY [None]
  - IRRITABILITY [None]
